FAERS Safety Report 17168071 (Version 5)
Quarter: 2020Q1

REPORT INFORMATION
  Report Type: Spontaneous
  Country: FR (occurrence: FR)
  Receive Date: 20191218
  Receipt Date: 20200319
  Transmission Date: 20200409
  Serious: Yes (Life-Threatening, Hospitalization, Other)
  Sender: FDA-Public Use
  Company Number: FR-BRISTOL-MYERS SQUIBB COMPANY-BMS-2019-117199

PATIENT
  Age: 50 Year
  Sex: Male

DRUGS (5)
  1. ATAZANAVIR SULFATE. [Suspect]
     Active Substance: ATAZANAVIR SULFATE
     Indication: HIV INFECTION
     Dosage: UNK
     Route: 065
     Dates: start: 2006
  2. TENOFOVIR DISOPROXIL FUMARATE. [Interacting]
     Active Substance: TENOFOVIR DISOPROXIL FUMARATE
     Indication: HIV INFECTION
     Dosage: UNK
     Route: 065
     Dates: start: 2004
  3. EMTRICITABINE [Concomitant]
     Active Substance: EMTRICITABINE
     Indication: ACQUIRED IMMUNODEFICIENCY SYNDROME
     Dosage: UNK
     Route: 065
  4. NEVIRAPINE. [Concomitant]
     Active Substance: NEVIRAPINE
     Indication: HIV INFECTION
     Dosage: UNK
     Route: 065
     Dates: start: 2006
  5. RITONAVIR. [Interacting]
     Active Substance: RITONAVIR
     Indication: ACQUIRED IMMUNODEFICIENCY SYNDROME
     Dosage: UNK
     Route: 065
     Dates: start: 2006

REACTIONS (10)
  - Fanconi syndrome acquired [Recovered/Resolved]
  - Rhabdomyolysis [Recovered/Resolved]
  - Polydipsia [Recovered/Resolved]
  - Renal tubular disorder [Recovered/Resolved]
  - Drug interaction [Unknown]
  - Proteinuria [Recovered/Resolved]
  - Polyuria [Recovered/Resolved]
  - Metabolic acidosis [Recovered/Resolved]
  - Hyponatraemia [Recovered/Resolved]
  - Toxicity to various agents [Recovered/Resolved]

NARRATIVE: CASE EVENT DATE: 2015
